FAERS Safety Report 5760347-3 (Version None)
Quarter: 2008Q2

REPORT INFORMATION
  Report Type: 
  Country: None (occurrence: None)
  Receive Date: 20080605
  Receipt Date: 20080602
  Transmission Date: 20081010
  Serious: Yes (Other)
  Sender: FDA-Public Use
  Company Number: FR-MERCK-0712FRA00066

PATIENT
  Age: 57 Year
  Sex: Female

DRUGS (8)
  1. COZAAR [Suspect]
     Indication: HYPERTENSION
     Route: 048
  2. RIBAVIRIN [Suspect]
     Route: 048
     Dates: start: 20070201
  3. PEGINTERFERON ALFA-2A [Suspect]
     Route: 058
     Dates: start: 20070201
  4. OMEPRAZOLE [Suspect]
     Route: 048
  5. POTASSIUM CHLORIDE [Suspect]
     Route: 048
  6. CYCLOSPORINE [Suspect]
     Indication: PROPHYLAXIS AGAINST TRANSPLANT REJECTION
     Route: 048
     Dates: start: 20070101
  7. ISRADIPINE [Suspect]
     Indication: HYPERTENSION
     Route: 048
  8. FUROSEMIDE [Suspect]
     Indication: HYPERTENSION
     Route: 048

REACTIONS (6)
  - ALANINE AMINOTRANSFERASE INCREASED [None]
  - ASPARTATE AMINOTRANSFERASE INCREASED [None]
  - BLOOD ALKALINE PHOSPHATASE INCREASED [None]
  - BLOOD BILIRUBIN INCREASED [None]
  - GAMMA-GLUTAMYLTRANSFERASE INCREASED [None]
  - HEPATIC STEATOSIS [None]
